FAERS Safety Report 11437819 (Version 1)
Quarter: 2015Q3

REPORT INFORMATION
  Report Type: Spontaneous
  Country: IT (occurrence: IT)
  Receive Date: 20150831
  Receipt Date: 20150831
  Transmission Date: 20151125
  Serious: Yes (Other)
  Sender: FDA-Public Use
  Company Number: IT-GILEAD-2015-0168961

PATIENT
  Age: 67 Year
  Sex: Male

DRUGS (7)
  1. DEURSIL [Concomitant]
     Active Substance: URSODIOL
  2. REBETOL [Suspect]
     Active Substance: RIBAVIRIN
     Indication: CHRONIC HEPATITIS C
     Dosage: 4 DF, QD
     Route: 048
     Dates: start: 20150515
  3. XARELTO [Concomitant]
     Active Substance: RIVAROXABAN
  4. LACIREX [Concomitant]
     Active Substance: LACIDIPINE
  5. LIMPIDEX [Concomitant]
     Active Substance: LANSOPRAZOLE
  6. SOVALDI [Suspect]
     Active Substance: SOFOSBUVIR
     Indication: CHRONIC HEPATITIS C
     Dosage: 1 DF, QD
     Route: 048
     Dates: start: 20150515
  7. TOBRAMIN [Concomitant]

REACTIONS (2)
  - Vertigo [Not Recovered/Not Resolved]
  - Nausea [Not Recovered/Not Resolved]

NARRATIVE: CASE EVENT DATE: 20150530
